FAERS Safety Report 11916031 (Version 2)
Quarter: 2018Q1

REPORT INFORMATION
  Report Type: Spontaneous
  Country: JP (occurrence: JP)
  Receive Date: 20160114
  Receipt Date: 20180315
  Transmission Date: 20180508
  Serious: Yes (Other)
  Sender: FDA-Public Use
  Company Number: JP-ELI_LILLY_AND_COMPANY-JP201601002556

PATIENT
  Age: 71 Year
  Sex: Female

DRUGS (1)
  1. EVISTA [Suspect]
     Active Substance: RALOXIFENE HYDROCHLORIDE
     Indication: OSTEOPOROSIS POSTMENOPAUSAL
     Dosage: 60 MG, DAILY
     Route: 048
     Dates: start: 2014, end: 2014

REACTIONS (1)
  - Endometriosis [Recovered/Resolved]

NARRATIVE: CASE EVENT DATE: 2014
